FAERS Safety Report 6161221-3 (Version None)
Quarter: 2009Q2

REPORT INFORMATION
  Report Type: 
  Country: None (occurrence: None)
  Receive Date: 20090421
  Receipt Date: 20090414
  Transmission Date: 20091009
  Serious: Yes (Hospitalization)
  Sender: FDA-Public Use
  Company Number: FR-WYE-G03499109

PATIENT
  Sex: Male
  Weight: 22.7 kg

DRUGS (3)
  1. ADVIL [Suspect]
     Indication: TOOTHACHE
     Route: 048
     Dates: start: 20090213, end: 20090218
  2. ADVIL [Suspect]
     Indication: PYREXIA
  3. MAXILASE [Suspect]
     Route: 048
     Dates: start: 20090213, end: 20090213

REACTIONS (7)
  - CONDITION AGGRAVATED [None]
  - ERYTHEMA MULTIFORME [None]
  - HAEMOPHILUS INFECTION [None]
  - HERPES SIMPLEX [None]
  - INFECTION [None]
  - SUPERINFECTION BACTERIAL [None]
  - TONSILLITIS BACTERIAL [None]
